FAERS Safety Report 24531258 (Version 1)
Quarter: 2024Q4

REPORT INFORMATION
  Report Type: Spontaneous
  Country: RU (occurrence: RU)
  Receive Date: 20241022
  Receipt Date: 20241022
  Transmission Date: 20250115
  Serious: Yes (Other)
  Sender: COLLEGIUM PHARMACEUTICAL
  Company Number: RU-STADA-01300505

PATIENT
  Age: 68 Year
  Sex: Male
  Weight: 68 kg

DRUGS (1)
  1. NUCYNTA [Suspect]
     Active Substance: TAPENTADOL HYDROCHLORIDE
     Indication: Mesothelioma malignant
     Dosage: 100 MILLIGRAM, TID
     Route: 048
     Dates: start: 20240920, end: 20240923

REACTIONS (3)
  - Erythema [Recovered/Resolved]
  - Face oedema [Recovered/Resolved]
  - Dyspnoea [Recovered/Resolved]

NARRATIVE: CASE EVENT DATE: 20240920
